FAERS Safety Report 7012122-X (Version None)
Quarter: 2010Q3

REPORT INFORMATION
  Report Type: 
  Country: None (occurrence: None)
  Receive Date: 20100924
  Receipt Date: 20100913
  Transmission Date: 20110219
  Serious: Yes (Other)
  Sender: FDA-Public Use
  Company Number: CO-JNJFOC-20100904524

PATIENT
  Age: 44 Year
  Sex: Female

DRUGS (4)
  1. REMICADE [Suspect]
     Indication: PSORIASIS
     Route: 042
  2. REMICADE [Suspect]
     Dosage: 100 MG/VIAL
     Route: 042
  3. REMICADE [Suspect]
     Dosage: 100 MG/VIAL
     Route: 042
  4. NITROFURANTOIN [Concomitant]

REACTIONS (4)
  - EYE OEDEMA [None]
  - EYE PRURITUS [None]
  - NODULE [None]
  - OEDEMA MOUTH [None]
